FAERS Safety Report 7638506-4 (Version None)
Quarter: 2011Q3

REPORT INFORMATION
  Report Type: 
  Country: None (occurrence: None)
  Receive Date: 20110727
  Receipt Date: 20110714
  Transmission Date: 20111222
  Serious: Yes (Hospitalization, Other)
  Sender: FDA-Public Use
  Company Number: PHHY2011JP55843

PATIENT
  Sex: Female
  Weight: 42 kg

DRUGS (7)
  1. DEPAS [Concomitant]
     Indication: PAIN
     Dosage: 0.5 MG, UNK
     Route: 048
     Dates: start: 20101005, end: 20101113
  2. PURSENNID [Concomitant]
     Indication: CONSTIPATION
     Dosage: 12 MG, UNK
     Route: 048
     Dates: start: 20101105, end: 20101113
  3. LOXONIN [Concomitant]
     Indication: PAIN
     Dosage: 120 MG, UNK
     Route: 048
     Dates: start: 20101112, end: 20101113
  4. AMITRIPTYLINE HCL [Concomitant]
     Indication: PAIN
     Dosage: 10 MG, UNK
     Route: 048
     Dates: start: 20101105, end: 20101113
  5. MUCOSTA [Concomitant]
     Indication: GASTRIC MUCOSAL LESION
     Dosage: 200 MG, UNK
     Route: 048
     Dates: start: 20101112, end: 20101113
  6. TEGRETOL [Suspect]
     Indication: TRIGEMINAL NEURALGIA
     Dosage: 150 MG, BID
     Route: 048
     Dates: start: 20101029, end: 20101108
  7. TEGRETOL [Suspect]
     Dosage: 200 MG, BID
     Route: 048
     Dates: start: 20101109, end: 20101113

REACTIONS (11)
  - LIVER DISORDER [None]
  - ALANINE AMINOTRANSFERASE INCREASED [None]
  - BLOOD LACTATE DEHYDROGENASE INCREASED [None]
  - STATUS EPILEPTICUS [None]
  - SKIN TEST POSITIVE [None]
  - LYMPHOCYTE STIMULATION TEST POSITIVE [None]
  - INSOMNIA [None]
  - DRUG ERUPTION [None]
  - ASPARTATE AMINOTRANSFERASE INCREASED [None]
  - EOSINOPHIL COUNT INCREASED [None]
  - RASH [None]
